FAERS Safety Report 9411079 (Version 1)
Quarter: 2013Q3

REPORT INFORMATION
  Report Type: Report from Study
  Country: DE (occurrence: DE)
  Receive Date: 20130720
  Receipt Date: 20130720
  Transmission Date: 20140515
  Serious: Yes (Death)
  Sender: FDA-Public Use
  Company Number: DE-ACCORD-018550

PATIENT
  Sex: 0

DRUGS (2)
  1. ETOPOSIDE [Suspect]
     Indication: GLIOMA
     Dosage: 120MG/M2/DAY.
  2. CARBOPLATIN [Suspect]
     Indication: GLIOMA
     Dosage: 100 MG/M2/DAY

REACTIONS (2)
  - Aplasia [Fatal]
  - Off label use [Unknown]
